FAERS Safety Report 6442860-9 (Version None)
Quarter: 2009Q4

REPORT INFORMATION
  Report Type: 
  Country: None (occurrence: None)
  Receive Date: 20091117
  Receipt Date: 20091110
  Transmission Date: 20100525
  Serious: Yes (Other)
  Sender: FDA-Public Use
  Company Number: DE-AMGEN-QUU373737

PATIENT
  Sex: Female

DRUGS (1)
  1. ARANESP [Suspect]
     Indication: DIALYSIS
     Dates: start: 20060101

REACTIONS (3)
  - ADVERSE REACTION [None]
  - APLASIA PURE RED CELL [None]
  - C-REACTIVE PROTEIN INCREASED [None]
